FAERS Safety Report 4442735-0 (Version None)
Quarter: 2004Q3

REPORT INFORMATION
  Report Type: 
  Country: None (occurrence: None)
  Receive Date: 20040903
  Receipt Date: 20040615
  Transmission Date: 20050211
  Serious: Yes (Other)
  Sender: FDA-Public Use
  Company Number: 2004UW12521

PATIENT
  Age: 71 Year
  Sex: Male

DRUGS (1)
  1. CRESTOR [Suspect]

REACTIONS (3)
  - BLOOD HOMOCYSTEINE INCREASED [None]
  - C-REACTIVE PROTEIN INCREASED [None]
  - LIPOPROTEIN (A) INCREASED [None]
